FAERS Safety Report 8978152 (Version 1)
Quarter: 2012Q4

REPORT INFORMATION
  Report Type: 
  Country: DE (occurrence: DE)
  Receive Date: 20121220
  Receipt Date: 20121220
  Transmission Date: 20130627
  Serious: Yes (Death, Life-Threatening, Hospitalization, Congenital Anomaly)
  Sender: FDA-Public Use
  Company Number: GXKR2012DE003880

PATIENT

DRUGS (2)
  1. FLUOXETINE [Suspect]
     Dosage: Maternal dose: 40 [mg/d ]/ after gestational week 29: 20mg/d
     Route: 064
  2. FOLIC ACID [Concomitant]
     Dosage: Maternal dose: 0.8 [mg/d ]
     Route: 064

REACTIONS (4)
  - Double outlet right ventricle [Fatal]
  - Ventricular septal defect [Fatal]
  - Transposition of the great vessels [Fatal]
  - Foetal exposure during pregnancy [Unknown]
